FAERS Safety Report 19938325 (Version 2)
Quarter: 2022Q2

REPORT INFORMATION
  Report Type: Spontaneous
  Country: JP (occurrence: JP)
  Receive Date: 20211011
  Receipt Date: 20220601
  Transmission Date: 20220721
  Serious: Yes (Other)
  Sender: FDA-Public Use
  Company Number: JP-TAKEDA-2021TJP085431

PATIENT
  Age: 50 Year
  Sex: Female

DRUGS (2)
  1. TRINTELLIX [Interacting]
     Active Substance: VORTIOXETINE HYDROBROMIDE
     Indication: Depression
     Dosage: 10 MILLIGRAM
     Route: 048
  2. PREDNISOLONE [Interacting]
     Active Substance: PREDNISOLONE
     Indication: Autoimmune disorder
     Dosage: UNK
     Route: 048

REACTIONS (3)
  - Bipolar disorder [Unknown]
  - Drug interaction [Unknown]
  - Activation syndrome [Recovered/Resolved]
